FAERS Safety Report 16900205 (Version 2)
Quarter: 2019Q4

REPORT INFORMATION
  Report Type: Spontaneous
  Country: JP (occurrence: JP)
  Receive Date: 20191009
  Receipt Date: 20191127
  Transmission Date: 20200122
  Serious: Yes (Hospitalization, Other)
  Sender: FDA-Public Use
  Company Number: JP-PFIZER INC-2019348537

PATIENT
  Age: 86 Year
  Sex: Female
  Weight: 46 kg

DRUGS (16)
  1. RABEPRAZOLE NA [Concomitant]
     Active Substance: RABEPRAZOLE SODIUM
     Dosage: 10 MG/DAY, UNKNOWN FREQ.
     Route: 048
  2. DEXTROMETHORPHAN HYDROBROMIDE. [Concomitant]
     Active Substance: DEXTROMETHORPHAN HYDROBROMIDE
     Dosage: 15 MG/DAY, UNKNOWN FREQ
     Route: 048
     Dates: end: 20190728
  3. CELECOX [Suspect]
     Active Substance: CELECOXIB
     Indication: BACK PAIN
     Dosage: 200 MG, 2X/DAY
     Route: 048
     Dates: start: 20190616
  4. RELVAR [Concomitant]
     Active Substance: FLUTICASONE FUROATE\VILANTEROL TRIFENATATE
     Indication: ASTHMA
     Dosage: ONE INHALATION AT A TIME, ONCE DAILY
     Route: 055
     Dates: start: 20190728
  5. EDIROL [Concomitant]
     Active Substance: ELDECALCITOL
     Indication: OSTEOPOROSIS
     Dosage: 0.75 UG, ONCE DAILY
     Route: 048
  6. RABEPRAZOLE NA [Concomitant]
     Active Substance: RABEPRAZOLE SODIUM
     Indication: GASTROOESOPHAGEAL REFLUX DISEASE
     Dosage: 10 MG/DAY, UNKNOWN FREQ
     Route: 048
  7. EVISTA [Concomitant]
     Active Substance: RALOXIFENE HYDROCHLORIDE
     Indication: OSTEOPOROSIS
     Dosage: 60 MG, 1X/DAY
     Route: 048
     Dates: end: 20190516
  8. MAGMITT [Concomitant]
     Active Substance: MAGNESIUM OXIDE
     Dosage: 1320 MG, UNKNOWN FREQ.
     Route: 048
  9. NEOXY [Concomitant]
     Active Substance: OXYBUTYNIN CHLORIDE
     Dosage: 73.5 MG, UNKNOWN FREQ
     Route: 062
     Dates: end: 20190728
  10. LUNESTA [Concomitant]
     Active Substance: ESZOPICLONE
     Dosage: 2 MG, UNKNOWN FREQ
     Route: 048
  11. BETANIS [Concomitant]
     Active Substance: MIRABEGRON
     Indication: HYPERTONIC BLADDER
     Dosage: 50 MG, 1X/DAY
     Route: 048
  12. LANSOPRAZOLE. [Concomitant]
     Active Substance: LANSOPRAZOLE
     Indication: GASTROOESOPHAGEAL REFLUX DISEASE
     Dosage: 15, ONCE DAILY
     Route: 048
  13. EVENITY [Suspect]
     Active Substance: ROMOSOZUMAB-AQQG
     Indication: OSTEOPOROSIS
     Dosage: 210 MG, 1X/DAY
     Route: 058
     Dates: start: 20190516, end: 20190613
  14. LEXAPRO [Suspect]
     Active Substance: ESCITALOPRAM OXALATE
     Indication: DEPRESSION
     Dosage: 10 MG, 1X/DAY
     Route: 048
  15. POLAPREZINC [Concomitant]
     Active Substance: POLAPREZINC
     Dosage: 150 MG/DAY, UNKNOWN FREQ
     Route: 048
     Dates: end: 20190728
  16. PANALDINE [Concomitant]
     Active Substance: TICLOPIDINE HYDROCHLORIDE
     Indication: CEREBRAL INFARCTION
     Dosage: 100 MG, 2X/DAY
     Route: 048
     Dates: start: 20190430

REACTIONS (2)
  - Head injury [Unknown]
  - Hyponatraemia [Recovering/Resolving]

NARRATIVE: CASE EVENT DATE: 20190728
